FAERS Safety Report 21170535 (Version 1)
Quarter: 2022Q3

REPORT INFORMATION
  Report Type: Spontaneous
  Country: ES (occurrence: ES)
  Receive Date: 20220804
  Receipt Date: 20220804
  Transmission Date: 20221027
  Serious: Yes (Hospitalization, Disabling)
  Sender: FDA-Public Use
  Company Number: ES-PFIZER INC-PV202200025438

PATIENT
  Age: 30 Year
  Sex: Female

DRUGS (11)
  1. NAPROXEN SODIUM [Suspect]
     Active Substance: NAPROXEN SODIUM
     Indication: Tendonitis
     Dosage: UNK
     Route: 065
  2. NAPROXEN SODIUM [Suspect]
     Active Substance: NAPROXEN SODIUM
     Indication: Plantar fasciitis
  3. ACETAMINOPHEN [Suspect]
     Active Substance: ACETAMINOPHEN
     Indication: Product used for unknown indication
     Dosage: UNK
     Route: 065
  4. TRAMADOL [Suspect]
     Active Substance: TRAMADOL
     Indication: Tendonitis
     Dosage: UNK
     Route: 065
  5. TRAMADOL [Suspect]
     Active Substance: TRAMADOL
     Indication: Plantar fasciitis
  6. LYRICA [Suspect]
     Active Substance: PREGABALIN
     Indication: Tendonitis
     Dosage: UNK
     Route: 065
  7. LYRICA [Suspect]
     Active Substance: PREGABALIN
     Indication: Plantar fasciitis
  8. METHYLPREDNISOLONE SODIUM SUCCINATE [Suspect]
     Active Substance: METHYLPREDNISOLONE SODIUM SUCCINATE
     Indication: Plantar fasciitis
     Dosage: UNK
     Route: 065
  9. METHYLPREDNISOLONE SODIUM SUCCINATE [Suspect]
     Active Substance: METHYLPREDNISOLONE SODIUM SUCCINATE
     Indication: Tendonitis
  10. DICLOFENAC [Suspect]
     Active Substance: DICLOFENAC
     Indication: Plantar fasciitis
     Dosage: UNK
     Route: 065
  11. DICLOFENAC [Suspect]
     Active Substance: DICLOFENAC
     Indication: Tendonitis

REACTIONS (6)
  - Drug ineffective for unapproved indication [Unknown]
  - Off label use [Unknown]
  - Allodynia [Unknown]
  - Oedema peripheral [Unknown]
  - Gait disturbance [Unknown]
  - Foot deformity [Unknown]
